FAERS Safety Report 9827746 (Version 1)
Quarter: 2013Q4

REPORT INFORMATION
  Report Type: Spontaneous
  Country: US (occurrence: None)
  Receive Date: 20131120
  Receipt Date: 20131120
  Transmission Date: 20140711
  Serious: No
  Sender: FDA-Public Use
  Company Number: 1000049286

PATIENT
  Sex: Male

DRUGS (2)
  1. VIIBRYD (VILADOZOONE HYDROCHLORIDE) (10MILLIGRAM, TABLETS) [Suspect]
     Indication: MAJOR DEPRESSION
     Dosage: 10 MG (10 MG, 1 IN 1 D), ORAL
     Route: 048
  2. VIIBRYD (VILADOZOONE HYDROCHLORIDE) (10MILLIGRAM, TABLETS) [Suspect]
     Indication: ANXIETY
     Dosage: 10 MG (10 MG, 1 IN 1 D), ORAL
     Route: 048

REACTIONS (1)
  - Mania [None]
